FAERS Safety Report 7360615-8 (Version None)
Quarter: 2011Q1

REPORT INFORMATION
  Report Type: 
  Country: None (occurrence: None)
  Receive Date: 20110318
  Receipt Date: 20110311
  Transmission Date: 20110831
  Serious: Yes (Hospitalization)
  Sender: FDA-Public Use
  Company Number: IT-SANOFI-AVENTIS-2011SA014753

PATIENT
  Age: 81 Year
  Sex: Female

DRUGS (4)
  1. COUMADIN [Suspect]
     Indication: ANTICOAGULANT THERAPY
     Route: 048
     Dates: start: 20101004, end: 20110208
  2. SPIRIVA [Concomitant]
     Route: 048
  3. LASIX [Suspect]
     Indication: HYPERTENSIVE CARDIOMYOPATHY
     Route: 048
     Dates: start: 20101004, end: 20110208
  4. SERETIDE [Concomitant]
     Route: 055

REACTIONS (2)
  - NORMOCHROMIC NORMOCYTIC ANAEMIA [None]
  - ACUTE PULMONARY OEDEMA [None]
